FAERS Safety Report 7183713-0 (Version None)
Quarter: 2010Q4

REPORT INFORMATION
  Report Type: 
  Country: None (occurrence: None)
  Receive Date: 20101222
  Receipt Date: 20101209
  Transmission Date: 20110411
  Serious: Yes (Other)
  Sender: FDA-Public Use
  Company Number: PHHY2010CA81813

PATIENT
  Sex: Female

DRUGS (7)
  1. ACLASTA [Suspect]
     Indication: OSTEOPOROSIS
     Dosage: UNK
     Route: 042
     Dates: start: 20091019
  2. ACLASTA [Suspect]
     Dosage: 5MG/100ML, ONCE A YEAR
     Route: 042
     Dates: start: 20100106
  3. CORTIZONE [Concomitant]
  4. ESTROGEL [Concomitant]
  5. ANAPROX [Concomitant]
  6. PROXETINE [Concomitant]
  7. CALCIUM [Concomitant]
     Dosage: 500

REACTIONS (4)
  - OSTEOARTHRITIS [None]
  - ROTATOR CUFF SYNDROME [None]
  - SHOULDER OPERATION [None]
  - TOOTH DISORDER [None]
